FAERS Safety Report 16364130 (Version 1)
Quarter: 2019Q2

REPORT INFORMATION
  Report Type: Spontaneous
  Country: CN (occurrence: CN)
  Receive Date: 20190528
  Receipt Date: 20190528
  Transmission Date: 20190711
  Serious: Yes (Hospitalization, Other)
  Sender: FDA-Public Use
  Company Number: CN-SHIRE-CN201916396

PATIENT

DRUGS (1)
  1. FOSRENOL [Suspect]
     Active Substance: LANTHANUM CARBONATE
     Indication: HYPERPHOSPHATAEMIA
     Dosage: 500 MILLIGRAM(ONE TABLET), 3X/DAY:TID
     Route: 048
     Dates: start: 20190121, end: 20190129

REACTIONS (3)
  - Hyperphosphataemia [Unknown]
  - Abdominal discomfort [Recovered/Resolved]
  - Azotaemia [Unknown]

NARRATIVE: CASE EVENT DATE: 20190127
